FAERS Safety Report 19708516 (Version 2)
Quarter: 2021Q3

REPORT INFORMATION
  Report Type: Report from Study
  Country: NL (occurrence: NL)
  Receive Date: 20210816
  Receipt Date: 20210830
  Transmission Date: 20211014
  Serious: Yes (Other)
  Sender: FDA-Public Use
  Company Number: NL-MYLANLABS-2021M1050092

PATIENT
  Age: 35 Year
  Sex: Female

DRUGS (8)
  1. TERIFLUNOMIDE. [Suspect]
     Active Substance: TERIFLUNOMIDE
     Indication: RELAPSING-REMITTING MULTIPLE SCLEROSIS
     Dosage: 14 MG, QD
     Route: 048
     Dates: start: 20201228
  2. AMITRIPTYLINE [Concomitant]
     Active Substance: AMITRIPTYLINE
     Dosage: 10 MG
  3. VITAMIN D                          /07503901/ [Concomitant]
     Active Substance: VITAMIN D NOS
     Dosage: 800 INTERNATIONAL UNIT
  4. PREGABALIN. [Suspect]
     Active Substance: PREGABALIN
     Indication: HERNIA
     Dosage: UNK
  5. DELAMONIE [Concomitant]
     Dosage: 75 MICROGRAM
     Route: 065
  6. DOMPERIDONE [Concomitant]
     Active Substance: DOMPERIDONE
     Dosage: 10 MG
  7. HEXAMETHYLMELAMINE [Concomitant]
     Active Substance: ALTRETAMINE
     Dosage: 10 MILLIGRAM
  8. TEMAZEPAM. [Concomitant]
     Active Substance: TEMAZEPAM
     Dosage: 10 MG

REACTIONS (10)
  - Dysuria [Not Recovered/Not Resolved]
  - Nausea [Recovered/Resolved]
  - Thrombosis [Not Recovered/Not Resolved]
  - Oral fungal infection [Not Recovered/Not Resolved]
  - Urine output decreased [Not Recovered/Not Resolved]
  - Heavy menstrual bleeding [Not Recovered/Not Resolved]
  - Palpitations [Recovered/Resolved]
  - Menstruation irregular [Not Recovered/Not Resolved]
  - Alopecia [Recovering/Resolving]
  - Urinary tract infection [Not Recovered/Not Resolved]

NARRATIVE: CASE EVENT DATE: 2020
